FAERS Safety Report 6908983-2 (Version None)
Quarter: 2010Q3

REPORT INFORMATION
  Report Type: 
  Country: None (occurrence: None)
  Receive Date: 20100708
  Receipt Date: 20090429
  Transmission Date: 20110219
  Serious: Yes (Other)
  Sender: FDA-Public Use
  Company Number: 2008150588

PATIENT
  Age: 47 Year
  Sex: Male
  Weight: 76.2 kg

DRUGS (4)
  1. CHANTIX [Suspect]
     Indication: SMOKING CESSATION THERAPY
     Dates: start: 20080329, end: 20080528
  2. LIPITOR [Concomitant]
  3. ZYRTEC [Concomitant]
  4. OMEGA (CONVALLARIA MAJALIS, CRATAEGUS, PROXYPHYLLINE) [Concomitant]

REACTIONS (11)
  - ABNORMAL BEHAVIOUR [None]
  - AMNESIA [None]
  - DELUSIONAL PERCEPTION [None]
  - DEPRESSION [None]
  - DIZZINESS [None]
  - HEADACHE [None]
  - HYPERSOMNIA [None]
  - IMPAIRED WORK ABILITY [None]
  - LOSS OF CONSCIOUSNESS [None]
  - SOCIAL AVOIDANT BEHAVIOUR [None]
  - SUICIDAL BEHAVIOUR [None]
